FAERS Safety Report 14296713 (Version 3)
Quarter: 2018Q1

REPORT INFORMATION
  Report Type: Spontaneous
  Country: JP (occurrence: JP)
  Receive Date: 20171218
  Receipt Date: 20180110
  Transmission Date: 20180509
  Serious: Yes (Hospitalization, Other)
  Sender: FDA-Public Use
  Company Number: JP-PFIZER INC-2017535390

PATIENT
  Age: 80 Year
  Sex: Male

DRUGS (10)
  1. TALION /01587402/ [Concomitant]
     Active Substance: BEPOTASTINE
     Dosage: UNK
     Route: 048
  2. SOLANAX [Suspect]
     Active Substance: ALPRAZOLAM
     Dosage: 0.8 MG, DAILY
     Route: 048
  3. CYMBALTA [Suspect]
     Active Substance: DULOXETINE HYDROCHLORIDE
     Dosage: 30 MG, DAILY
     Route: 048
     Dates: start: 20171018
  4. HIRUDOID [Concomitant]
     Active Substance: GLYCOSAMINOGLYCANS
     Dosage: UNK
  5. RINDERON V [Concomitant]
     Active Substance: BETAMETHASONE VALERATE
     Dosage: UNK
  6. YOKUKANSANKA CHINPIHANGE [Concomitant]
     Dosage: UNK
  7. LUNESTA [Suspect]
     Active Substance: ESZOPICLONE
     Indication: INSOMNIA
     Dosage: 1 MG, DAILY
     Route: 048
     Dates: start: 20171018, end: 20171018
  8. SHIGYAKUSAN [Concomitant]
     Dosage: 7.5 G, 3X/DAY, BETWEEN MEALS
     Route: 048
     Dates: start: 20170207
  9. SOLANAX [Suspect]
     Active Substance: ALPRAZOLAM
     Dosage: 0.4 MG, 1X/DAY AT BEDTIME
     Dates: start: 20171129
  10. CYMBALTA [Suspect]
     Active Substance: DULOXETINE HYDROCHLORIDE
     Dosage: 20 MG, DAILY
     Route: 048
     Dates: start: 20171011, end: 20171018

REACTIONS (5)
  - Fall [Recovered/Resolved]
  - Parkinsonism [Unknown]
  - Asthenia [Unknown]
  - Dizziness [Not Recovered/Not Resolved]
  - Intentional overdose [Unknown]

NARRATIVE: CASE EVENT DATE: 20171018
